FAERS Safety Report 7543992-4 (Version None)
Quarter: 2011Q2

REPORT INFORMATION
  Report Type: 
  Country: None (occurrence: None)
  Receive Date: 20110613
  Receipt Date: 20050428
  Transmission Date: 20111010
  Serious: Yes (Hospitalization, Other)
  Sender: FDA-Public Use
  Company Number: PHFR2004GB03110

PATIENT
  Sex: Female

DRUGS (2)
  1. CITALOPRAM HYDROBROMIDE [Concomitant]
     Indication: DEPRESSION
     Route: 048
  2. CLOZAPINE [Suspect]
     Indication: SCHIZOPHRENIA
     Dosage: 75 MG, QD
     Route: 048
     Dates: start: 20030806

REACTIONS (6)
  - BREAST CANCER [None]
  - INFECTION [None]
  - MALAISE [None]
  - WOUND INFECTION [None]
  - STAPHYLOCOCCAL INFECTION [None]
  - AGRANULOCYTOSIS [None]
